FAERS Safety Report 16683285 (Version 2)
Quarter: 2020Q3

REPORT INFORMATION
  Report Type: Other
  Country: CA (occurrence: CA)
  Receive Date: 20190808
  Receipt Date: 20200727
  Transmission Date: 20201102
  Serious: Yes (Hospitalization)
  Sender: FDA-Public Use
  Company Number: CA-SAOL THERAPEUTICS-2019SAO00307

PATIENT
  Age: 52 Year
  Sex: Female

DRUGS (12)
  1. HYDROXYCHLOROQUINE SULFATE. [Suspect]
     Active Substance: HYDROXYCHLOROQUINE SULFATE
     Indication: PRODUCT USED FOR UNKNOWN INDICATION
     Dosage: 200 MG, 1X/DAY; 1 EVERY 24 HOURS
     Route: 048
  2. ISONIAZID. [Suspect]
     Active Substance: ISONIAZID
     Indication: PROPHYLAXIS
  3. VARICELLA ZOSTER IMMUNE GLOBULIN [Suspect]
     Active Substance: HUMAN VARICELLA-ZOSTER IMMUNE GLOBULIN
     Indication: PRODUCT USED FOR UNKNOWN INDICATION
     Route: 030
  4. ACTEMRA [Suspect]
     Active Substance: TOCILIZUMAB
     Indication: PRODUCT USED FOR UNKNOWN INDICATION
  5. PLAQUENIL [Suspect]
     Active Substance: HYDROXYCHLOROQUINE SULFATE
     Indication: PRODUCT USED FOR UNKNOWN INDICATION
     Dosage: 200.0 MG, 1X/DAY; 1 EVERY 24 HOURS
     Route: 048
  6. ARAVA [Suspect]
     Active Substance: LEFLUNOMIDE
     Indication: PRODUCT USED FOR UNKNOWN INDICATION
     Dosage: 20 MG, 1X/DAY; 1 EVERY 24 HOURS
  7. HYDROXYCHLOROQUINE SULFATE. [Suspect]
     Active Substance: HYDROXYCHLOROQUINE SULFATE
     Indication: PRODUCT USED FOR UNKNOWN INDICATION
  8. MYOCHRYSINE [Suspect]
     Active Substance: GOLD SODIUM THIOMALATE
     Indication: PRODUCT USED FOR UNKNOWN INDICATION
     Dosage: 50.0 MG, 1X/WEEK
     Route: 030
  9. REMICADE [Suspect]
     Active Substance: INFLIXIMAB
     Indication: PRODUCT USED FOR UNKNOWN INDICATION
     Dosage: 200 MG
     Route: 065
  10. REMICADE [Suspect]
     Active Substance: INFLIXIMAB
     Indication: PRODUCT USED FOR UNKNOWN INDICATION
     Dosage: 200.0 MG; POWDER FOR SOLUTION INTRAVENOUS [ROUTE: INTRAVENOUS (NOT OTHERWISE SPECIFIED)]^
     Route: 042
  11. METHOTREXATE. [Suspect]
     Active Substance: METHOTREXATE
     Indication: RHEUMATOID ARTHRITIS
     Dosage: UNK, 1X/WEEK
     Route: 058
  12. SULFASALAZINE. [Suspect]
     Active Substance: SULFASALAZINE
     Indication: RHEUMATOID ARTHRITIS
     Dosage: 2000.0 MG, 1X/DAY
     Route: 048

REACTIONS (16)
  - Lymphadenopathy [Not Recovered/Not Resolved]
  - Neutropenia [Not Recovered/Not Resolved]
  - Pulmonary mass [Not Recovered/Not Resolved]
  - Drug ineffective [Not Recovered/Not Resolved]
  - Fungal infection [Not Recovered/Not Resolved]
  - Microcytic anaemia [Not Recovered/Not Resolved]
  - Pyrexia [Not Recovered/Not Resolved]
  - Abdominal pain upper [Not Recovered/Not Resolved]
  - Escherichia urinary tract infection [Not Recovered/Not Resolved]
  - Joint swelling [Not Recovered/Not Resolved]
  - Renal cyst [Not Recovered/Not Resolved]
  - Headache [Not Recovered/Not Resolved]
  - Mouth ulceration [Not Recovered/Not Resolved]
  - Hepatic cyst [Not Recovered/Not Resolved]
  - Hepatic haematoma [Not Recovered/Not Resolved]
  - Hepatitis B core antibody positive [Not Recovered/Not Resolved]
